FAERS Safety Report 7737773-6 (Version None)
Quarter: 2011Q3

REPORT INFORMATION
  Report Type: 
  Country: None (occurrence: None)
  Receive Date: 20110908
  Receipt Date: 20110830
  Transmission Date: 20111222
  Serious: Yes (Hospitalization, Other)
  Sender: FDA-Public Use
  Company Number: US-BAXTER-2011BH003721

PATIENT
  Sex: Male

DRUGS (4)
  1. EXTRANEAL [Suspect]
     Indication: PERITONEAL DIALYSIS
     Route: 033
     Dates: start: 20090311, end: 20110509
  2. DIANEAL [Suspect]
     Route: 033
     Dates: start: 20110718
  3. DIANEAL [Suspect]
     Indication: PERITONEAL DIALYSIS
     Route: 033
     Dates: start: 20090311, end: 20110506
  4. EXTRANEAL [Suspect]
     Route: 033
     Dates: start: 20110718

REACTIONS (5)
  - CORONARY ARTERY OCCLUSION [None]
  - CARDIAC DISORDER [None]
  - CHEST PAIN [None]
  - CARDIAC VALVE DISEASE [None]
  - WOUND INFECTION [None]
